FAERS Safety Report 8718655 (Version 3)
Quarter: 2013Q1

REPORT INFORMATION
  Report Type: Spontaneous
  Country: US (occurrence: US)
  Receive Date: 20120810
  Receipt Date: 20130227
  Transmission Date: 20140127
  Serious: No
  Sender: FDA-Public Use
  Company Number: US-ASTRAZENECA-2012SE26663

PATIENT
  Age: 81 Year
  Sex: Female

DRUGS (2)
  1. ARIMIDEX [Suspect]
     Indication: NEOPLASM MALIGNANT
     Route: 048
  2. ARIMIDEX [Suspect]
     Indication: NEOPLASM MALIGNANT
     Dosage: GENERIC
     Route: 048
     Dates: start: 201212

REACTIONS (2)
  - Macular degeneration [Unknown]
  - Alopecia [Unknown]
